FAERS Safety Report 19472201 (Version 1)
Quarter: 2021Q2

REPORT INFORMATION
  Report Type: Spontaneous
  Country: US (occurrence: US)
  Receive Date: 20210629
  Receipt Date: 20210629
  Transmission Date: 20210717
  Serious: Yes (Hospitalization, Other)
  Sender: FDA-Public Use
  Company Number: US-ASTELLAS-2021US023245

PATIENT
  Age: 75 Year
  Sex: Male

DRUGS (1)
  1. ENFORTUMAB VEDOTIN [Suspect]
     Active Substance: ENFORTUMAB VEDOTIN
     Indication: TRANSITIONAL CELL CARCINOMA
     Dosage: UNK UNK, UNKNOWN FREQ.
     Route: 065

REACTIONS (9)
  - Distributive shock [Unknown]
  - Dyspnoea [Unknown]
  - Rash erythematous [Recovering/Resolving]
  - Hypotension [Unknown]
  - Vomiting [Unknown]
  - Rash papular [Recovering/Resolving]
  - Hypersensitivity [Unknown]
  - Exfoliative rash [Recovering/Resolving]
  - Diarrhoea [Unknown]
